FAERS Safety Report 5831763-6 (Version None)
Quarter: 2008Q3

REPORT INFORMATION
  Report Type: 
  Country: None (occurrence: None)
  Receive Date: 20080803
  Receipt Date: 20080724
  Transmission Date: 20090109
  Serious: Yes (Other)
  Sender: FDA-Public Use
  Company Number: PHHY2008GR15796

PATIENT
  Sex: Female

DRUGS (3)
  1. EXJADE [Suspect]
     Indication: THALASSAEMIA BETA
     Dosage: 250 MG, QD
     Route: 048
     Dates: start: 20080713, end: 20080722
  2. RED BLOOD CELLS [Concomitant]
     Dosage: 110 CC, EVERY 25 DAYS
  3. CORTISONE [Concomitant]

REACTIONS (2)
  - HAEMORRHAGIC URTICARIA [None]
  - RASH [None]
